FAERS Safety Report 5820366-5 (Version None)
Quarter: 2008Q3

REPORT INFORMATION
  Report Type: 
  Country: None (occurrence: None)
  Receive Date: 20080724
  Receipt Date: 20070618
  Transmission Date: 20090109
  Serious: No
  Sender: FDA-Public Use
  Company Number: A0657194A

PATIENT
  Age: 46 Year
  Sex: Female

DRUGS (3)
  1. AVANDIA [Suspect]
     Dosage: 4MG PER DAY
     Route: 048
     Dates: start: 20050101, end: 20070601
  2. LISINOPRIL [Concomitant]
  3. TOPROL-XL [Concomitant]

REACTIONS (1)
  - TACHYCARDIA [None]
